FAERS Safety Report 14743201 (Version 1)
Quarter: 2018Q2

REPORT INFORMATION
  Report Type: Spontaneous
  Country: IE (occurrence: IE)
  Receive Date: 20180410
  Receipt Date: 20180410
  Transmission Date: 20180711
  Serious: Yes (Disabling)
  Sender: FDA-Public Use
  Company Number: IE-BAUSCH-BL-2018-009824

PATIENT
  Age: 89 Year
  Sex: Female
  Weight: 41 kg

DRUGS (1)
  1. GENTAMICIN (GENERIC) [Suspect]
     Active Substance: GENTAMICIN
     Indication: PRODUCT USED FOR UNKNOWN INDICATION
     Dosage: USING LOW DOSE GENTAMICIN DUE TO RENAL IMPAIRMENT
     Route: 065
     Dates: start: 20180322, end: 20180327

REACTIONS (1)
  - Tinnitus [Not Recovered/Not Resolved]

NARRATIVE: CASE EVENT DATE: 20180325
